FAERS Safety Report 22146137 (Version 1)
Quarter: 2023Q1

REPORT INFORMATION
  Report Type: Report from Study
  Country: US (occurrence: US)
  Receive Date: 20230328
  Receipt Date: 20230328
  Transmission Date: 20230418
  Serious: No
  Sender: FDA-Public Use
  Company Number: US-002147023-NVSC2023US068686

PATIENT
  Sex: Male
  Weight: 83.91 kg

DRUGS (1)
  1. TRIAMCINOLONE ACETONIDE [Suspect]
     Active Substance: TRIAMCINOLONE ACETONIDE
     Indication: Psoriasis
     Dosage: 0.1 %
     Route: 061

REACTIONS (1)
  - Drug ineffective [Unknown]
